FAERS Safety Report 11981717 (Version 1)
Quarter: 2016Q1

REPORT INFORMATION
  Report Type: Report from Study
  Country: PE (occurrence: PE)
  Receive Date: 20160131
  Receipt Date: 20160131
  Transmission Date: 20160526
  Serious: Yes (Other)
  Sender: FDA-Public Use
  Company Number: PE-BRISTOL-MYERS SQUIBB COMPANY-14953236

PATIENT
  Age: 45 Year
  Sex: Female
  Weight: 60 kg

DRUGS (7)
  1. EXTERNAL-VITAMINS NOS [Suspect]
     Active Substance: VITAMINS
     Indication: NUTRITIONAL SUPPLEMENTATION
     Dosage: 1DF=1TAB
     Route: 048
     Dates: start: 20081002, end: 20100126
  2. CIPROFLOXACIN. [Suspect]
     Active Substance: CIPROFLOXACIN
     Indication: BREAST NEOPLASM
     Dosage: 500 MG, BID
     Route: 048
     Dates: start: 20091217, end: 20091221
  3. EXTERNAL-FOLIC ACID [Suspect]
     Active Substance: FOLIC ACID
     Indication: RHEUMATOID ARTHRITIS
     Dosage: 1 MG, QD
     Route: 048
     Dates: start: 20061025, end: 20100126
  4. KETOROLAC [Suspect]
     Active Substance: KETOROLAC\KETOROLAC TROMETHAMINE
     Indication: BREAST NEOPLASM
     Dosage: 100 MG, QD
     Route: 050
     Dates: start: 20091217, end: 20091218
  5. EXTERNAL-CELECOXIB [Suspect]
     Active Substance: CELECOXIB
     Indication: RHEUMATOID ARTHRITIS
     Dosage: 400 MG, QD
     Route: 048
     Dates: start: 20080523, end: 20100126
  6. ABATACEPT [Suspect]
     Active Substance: ABATACEPT
     Indication: RHEUMATOID ARTHRITIS
     Dosage: 125 MG, QWK
     Route: 058
     Dates: start: 20090422, end: 20100126
  7. EXTERNAL-METHOTREXATE SODIUM [Suspect]
     Active Substance: METHOTREXATE SODIUM
     Indication: PRODUCT USED FOR UNKNOWN INDICATION
     Dosage: 15 MG, QWK
     Route: 048
     Dates: start: 20061025, end: 20100126

REACTIONS (5)
  - Pregnancy on contraceptive [Recovered/Resolved]
  - Stillbirth [Unknown]
  - Exposure during pregnancy [None]
  - Caesarean section [Unknown]
  - Haemorrhagic stroke [Unknown]

NARRATIVE: CASE EVENT DATE: 20100621
